FAERS Safety Report 12325233 (Version 2)
Quarter: 2017Q3

REPORT INFORMATION
  Report Type: Spontaneous
  Country: PL (occurrence: PL)
  Receive Date: 20160502
  Receipt Date: 20170711
  Transmission Date: 20171127
  Serious: Yes (Hospitalization, Other)
  Sender: FDA-Public Use
  Company Number: PHHY2016PL056767

PATIENT
  Sex: Male

DRUGS (6)
  1. KETONAL [Suspect]
     Active Substance: KETOPROFEN
     Indication: PRODUCT USED FOR UNKNOWN INDICATION
     Dosage: 1 UNK, TID
     Route: 041
     Dates: start: 20160422, end: 20160428
  2. CONTROLOC [Concomitant]
     Active Substance: PANTOPRAZOLE SODIUM
     Indication: PRODUCT USED FOR UNKNOWN INDICATION
     Dosage: 40 MG, UNK
     Route: 042
  3. PYRALGIN [Suspect]
     Active Substance: DIPYRONE
     Indication: PRODUCT USED FOR UNKNOWN INDICATION
     Dosage: 1 UNK, TID
     Route: 042
  4. CLEXANE [Concomitant]
     Active Substance: ENOXAPARIN SODIUM
     Indication: PRODUCT USED FOR UNKNOWN INDICATION
     Dosage: 0.4 UNK, QD
     Route: 065
  5. BIOFUROKSYM [Concomitant]
     Active Substance: CEFUROXIME SODIUM
     Indication: PRODUCT USED FOR UNKNOWN INDICATION
     Dosage: 750 MG, TID
     Route: 065
  6. ELECTROLYTE [Concomitant]
     Active Substance: UNSPECIFIED INGREDIENT
     Indication: PRODUCT USED FOR UNKNOWN INDICATION
     Dosage: 1600 UNK, UNK
     Route: 042

REACTIONS (23)
  - Arrhythmia [Not Recovered/Not Resolved]
  - Urinary tract disorder [Unknown]
  - Overdose [Not Recovered/Not Resolved]
  - Dysaesthesia [Unknown]
  - Erectile dysfunction [Unknown]
  - Tremor [Not Recovered/Not Resolved]
  - Anal sphincter atony [Unknown]
  - Aptyalism [Not Recovered/Not Resolved]
  - Speech disorder [Not Recovered/Not Resolved]
  - Headache [Not Recovered/Not Resolved]
  - Gait disturbance [Not Recovered/Not Resolved]
  - Infertility male [Not Recovered/Not Resolved]
  - Salivary gland disorder [Not Recovered/Not Resolved]
  - Condition aggravated [Not Recovered/Not Resolved]
  - Sexual dysfunction [Unknown]
  - Semen volume decreased [Not Recovered/Not Resolved]
  - Tongue disorder [Not Recovered/Not Resolved]
  - Nervous system disorder [Not Recovered/Not Resolved]
  - Anorgasmia [Unknown]
  - Cranial nerve infection [Not Recovered/Not Resolved]
  - Muscle spasms [Not Recovered/Not Resolved]
  - Hyperreflexia [Not Recovered/Not Resolved]
  - Jaw disorder [Not Recovered/Not Resolved]
